FAERS Safety Report 9335797 (Version 2)
Quarter: 2013Q2

REPORT INFORMATION
  Report Type: Spontaneous
  Country: US (occurrence: US)
  Receive Date: 20130606
  Receipt Date: 20130628
  Transmission Date: 20140414
  Serious: Yes (Other)
  Sender: FDA-Public Use
  Company Number: PHHY2013US055825

PATIENT
  Age: 62 Year
  Sex: Female

DRUGS (5)
  1. BUFFERIN [Suspect]
     Indication: PAIN
     Dosage: 2 DF, UNK
     Route: 048
     Dates: start: 1970, end: 1990
  2. BUFFERIN [Suspect]
     Indication: HYPOAESTHESIA
  3. ACETYLSALICYLIC ACID [Suspect]
     Indication: PAIN
     Dosage: 2 DF (1-2 PILLS AS NEEDED)
     Route: 048
  4. ACETYLSALICYLIC ACID [Suspect]
     Indication: HYPOAESTHESIA
     Dosage: 6 DF, (4-6 COUPLE OF TIMES)
  5. LORAZEPAM [Concomitant]
     Indication: GASTROINTESTINAL PAIN

REACTIONS (12)
  - Cerebrovascular accident [Unknown]
  - Myocardial infarction [Unknown]
  - Haemorrhoids [Not Recovered/Not Resolved]
  - Haemorrhage [Recovered/Resolved]
  - Chest pain [Recovering/Resolving]
  - Rectal haemorrhage [Not Recovered/Not Resolved]
  - Flatulence [Not Recovered/Not Resolved]
  - Back pain [Recovered/Resolved]
  - Pain in extremity [Unknown]
  - Erythema [Unknown]
  - Joint swelling [Unknown]
  - Hypoaesthesia [Recovered/Resolved]
